FAERS Safety Report 8282422-4 (Version None)
Quarter: 2012Q2

REPORT INFORMATION
  Report Type: 
  Country: None (occurrence: None)
  Receive Date: 20120413
  Receipt Date: 20120403
  Transmission Date: 20120825
  Serious: Yes (Other)
  Sender: FDA-Public Use
  Company Number: AT-JNJFOC-20120207303

PATIENT
  Sex: Male
  Weight: 82 kg

DRUGS (2)
  1. ZYTIGA [Suspect]
     Indication: PROSTATE CANCER
     Dosage: 250 MG TABLETS, TAKEN 40 MINUTES AFTER PREDNISOLONE
     Route: 048
     Dates: start: 20101001
  2. PREDNISOLONE [Concomitant]
     Indication: PROSTATE CANCER
     Route: 065

REACTIONS (13)
  - NERVE ROOT INJURY [None]
  - DECREASED APPETITE [None]
  - CONSTIPATION [None]
  - NAIL DISORDER [None]
  - FAECES HARD [None]
  - CARDIAC FIBRILLATION [None]
  - IRRITABILITY [None]
  - TINNITUS [None]
  - INTRACRANIAL PRESSURE INCREASED [None]
  - SLEEP DISORDER [None]
  - DRY SKIN [None]
  - HYPERACUSIS [None]
  - PRURITUS [None]
